FAERS Safety Report 7432419-9 (Version None)
Quarter: 2011Q2

REPORT INFORMATION
  Report Type: 
  Country: None (occurrence: None)
  Receive Date: 20110422
  Receipt Date: 20110407
  Transmission Date: 20111010
  Serious: No
  Sender: FDA-Public Use
  Company Number: US-B.I. PHARMACEUTICALS,INC./RIDGEFIELD-2011-BP-10310BP

PATIENT
  Sex: Female

DRUGS (3)
  1. FLECAINIDE ACETATE [Concomitant]
     Indication: ARRHYTHMIA
     Dosage: 50 MG
     Route: 048
  2. VITAMINS [Concomitant]
  3. PRADAXA [Suspect]
     Indication: ARRHYTHMIA
     Dosage: 300 MG
     Route: 048
     Dates: start: 20110319

REACTIONS (2)
  - ASTHENIA [None]
  - DIZZINESS [None]
